FAERS Safety Report 4596242-5 (Version None)
Quarter: 2005Q1

REPORT INFORMATION
  Report Type: 
  Country: None (occurrence: None)
  Receive Date: 20050225
  Receipt Date: 20050217
  Transmission Date: 20050727
  Serious: Yes (Hospitalization)
  Sender: FDA-Public Use
  Company Number: 2005UW02764

PATIENT
  Age: 81 Year
  Sex: Male
  Weight: 78.0187 kg

DRUGS (2)
  1. IRESSA [Suspect]
     Indication: NON-SMALL CELL LUNG CANCER
     Dosage: 250 MG QD PO
     Route: 048
     Dates: start: 20041108
  2. DOCETAXEL [Suspect]
     Indication: NON-SMALL CELL LUNG CANCER
     Dosage: 46 MG WEEK
     Dates: start: 20041108

REACTIONS (4)
  - ABDOMINAL PAIN [None]
  - HAEMATEMESIS [None]
  - INTESTINAL ISCHAEMIA [None]
  - PNEUMATOSIS [None]
